FAERS Safety Report 4317746-6 (Version None)
Quarter: 2004Q1

REPORT INFORMATION
  Report Type: 
  Country: None (occurrence: None)
  Receive Date: 20040312
  Receipt Date: 20040308
  Transmission Date: 20041129
  Serious: Yes (Disabling)
  Sender: FDA-Public Use
  Company Number: UKP04000097

PATIENT
  Age: 86 Year
  Sex: Male

DRUGS (7)
  1. DIDRONEL [Suspect]
     Indication: OSTEOPOROSIS
     Dosage: 1 TABLET, CYCLIC 1/D, ORAL
     Route: 048
     Dates: start: 20040218, end: 20040219
  2. FOSAMAX [Suspect]
     Indication: OSTEOPOROSIS
     Dosage: 10 MG, DAILY, ORAL
     Route: 048
     Dates: start: 20040205, end: 20040206
  3. FUROSEMIDE [Concomitant]
  4. BUPRENORPHINE (BUPRENORPHINE) [Concomitant]
  5. WARFARIN SODIUM [Concomitant]
  6. DILTIAZEM [Concomitant]
  7. PREDNISOLONE [Concomitant]

REACTIONS (1)
  - CONFUSIONAL STATE [None]
